FAERS Safety Report 25728439 (Version 1)
Quarter: 2025Q3

REPORT INFORMATION
  Report Type: Spontaneous
  Country: US (occurrence: US)
  Receive Date: 20250826
  Receipt Date: 20250826
  Transmission Date: 20251021
  Serious: Yes (Hospitalization)
  Sender: FRESENIUS KABI
  Company Number: US-FreseniusKabi-FK202511507

PATIENT
  Age: 61 Year
  Sex: Male
  Weight: 57.9 kg

DRUGS (5)
  1. FLUOROURACIL [Suspect]
     Active Substance: FLUOROURACIL
     Indication: Metastatic neoplasm
     Route: 042
     Dates: start: 20250728
  2. LEUCOVORIN [Suspect]
     Active Substance: LEUCOVORIN\LEUCOVORIN CALCIUM
     Indication: Metastatic neoplasm
     Route: 042
     Dates: start: 20250728
  3. INCB-161734 HYDROCHLORIDE DIHYDRATE [Suspect]
     Active Substance: INCB-161734 HYDROCHLORIDE DIHYDRATE
     Indication: Metastatic neoplasm
     Dosage: QD?FORM OF ADMINISTRATION: TABLET
     Route: 048
     Dates: start: 20250728
  4. OXALIPLATIN [Suspect]
     Active Substance: OXALIPLATIN
     Indication: Metastatic neoplasm
     Route: 042
     Dates: start: 20250728
  5. IRINOTECAN [Suspect]
     Active Substance: IRINOTECAN
     Indication: Metastatic neoplasm
     Route: 042
     Dates: start: 20250728

REACTIONS (1)
  - Clostridium colitis [Not Recovered/Not Resolved]
